FAERS Safety Report 7826584-9 (Version None)
Quarter: 2011Q4

REPORT INFORMATION
  Report Type: 
  Country: None (occurrence: None)
  Receive Date: 20111020
  Receipt Date: 20111006
  Transmission Date: 20120403
  Serious: Yes (Hospitalization)
  Sender: FDA-Public Use
  Company Number: CA-ALVOGEN-CAP11000007

PATIENT
  Age: 46 Year
  Sex: Female
  Weight: 68 kg

DRUGS (2)
  1. MACROBID [Suspect]
     Indication: URINARY TRACT INFECTION
     Dosage: 100 MG, UNK
     Route: 048
     Dates: start: 20101209, end: 20101214
  2. MINOXIDIL (FOR MEN) [Suspect]
     Indication: ALOPECIA
     Dosage: 1 ML TWICE DAILY
     Route: 061
     Dates: start: 20101020, end: 20101216

REACTIONS (11)
  - OEDEMA PERIPHERAL [None]
  - RASH MACULAR [None]
  - WRONG DRUG ADMINISTERED [None]
  - URINARY TRACT INFECTION [None]
  - INFLAMMATION [None]
  - BURNING SENSATION [None]
  - URTICARIA [None]
  - DRUG HYPERSENSITIVITY [None]
  - RASH [None]
  - PAIN [None]
  - DYSPNOEA [None]
